FAERS Safety Report 7512942-9 (Version None)
Quarter: 2011Q2

REPORT INFORMATION
  Report Type: 
  Country: None (occurrence: None)
  Receive Date: 20110531
  Receipt Date: 20110517
  Transmission Date: 20111010
  Serious: Yes (Hospitalization, Other)
  Sender: FDA-Public Use
  Company Number: NL-JNJFOC-20100602708

PATIENT
  Sex: Female
  Weight: 65 kg

DRUGS (6)
  1. REMICADE [Suspect]
     Route: 042
     Dates: start: 20040712
  2. IMURAN [Concomitant]
     Indication: CROHN'S DISEASE
     Dates: start: 20070402, end: 20070424
  3. IMURAN [Concomitant]
     Dates: start: 20070424
  4. IMURAN [Concomitant]
     Dates: end: 20070303
  5. MOVIPREP [Concomitant]
     Indication: CROHN'S DISEASE
  6. REMICADE [Suspect]
     Indication: CROHN'S DISEASE
     Route: 042
     Dates: start: 20040915

REACTIONS (1)
  - CYTOMEGALOVIRUS INFECTION [None]
